FAERS Safety Report 25957439 (Version 1)
Quarter: 2025Q4

REPORT INFORMATION
  Report Type: Spontaneous
  Country: US (occurrence: None)
  Receive Date: 20251024
  Receipt Date: 20251024
  Transmission Date: 20260117
  Serious: No
  Sender: FDA-CTU
  Company Number: None

PATIENT
  Sex: Female

DRUGS (5)
  1. VIGABATRIN [Suspect]
     Active Substance: VIGABATRIN
     Indication: Epilepsy
     Dosage: FREQUENCY : TWICE A DAY;?OTHER ROUTE : G-TUBE;?
     Route: 050
  2. VITAMIN D3 400 [Concomitant]
  3. VIMPAT [Concomitant]
     Active Substance: LACOSAMIDE
  4. NEXIUM [Concomitant]
     Active Substance: ESOMEPRAZOLE MAGNESIUM
  5. PREDNISONE [Concomitant]
     Active Substance: PREDNISONE

REACTIONS (4)
  - Malaise [None]
  - Nausea [None]
  - Somnolence [None]
  - Ill-defined disorder [None]
